FAERS Safety Report 5226337-4 (Version None)
Quarter: 2007Q1

REPORT INFORMATION
  Report Type: 
  Country: None (occurrence: None)
  Receive Date: 20070201
  Receipt Date: 20070129
  Transmission Date: 20070707
  Serious: Yes (Other)
  Sender: FDA-Public Use
  Company Number: FR-BAYER-200611222BFR

PATIENT
  Age: 51 Year
  Sex: Male
  Weight: 96 kg

DRUGS (7)
  1. SORAFENIB [Suspect]
     Indication: HEPATIC NEOPLASM MALIGNANT
     Dosage: TOTAL DAILY DOSE: 800 MG  UNIT DOSE: 200 MG
     Route: 048
     Dates: start: 20051125
  2. DAONIL [Concomitant]
     Indication: DIABETES MELLITUS
     Route: 048
     Dates: start: 19900101
  3. CAPTEA [Concomitant]
     Indication: HYPERTENSION
     Route: 048
     Dates: start: 19950101
  4. PROSCAR [Concomitant]
     Indication: PROSTATIC ADENOMA
     Route: 048
     Dates: start: 20030101
  5. ZOLPIDEM TARTRATE [Concomitant]
     Indication: INSOMNIA
     Route: 048
     Dates: start: 20051214
  6. NEXIUM [Concomitant]
     Indication: GASTRITIS
     Route: 048
     Dates: start: 20060807
  7. RHINUREFLEX [Concomitant]
     Indication: TOOTH ABSCESS
     Route: 048
     Dates: start: 20061115, end: 20061213

REACTIONS (1)
  - TONGUE OEDEMA [None]
